FAERS Safety Report 6457061-8 (Version None)
Quarter: 2009Q4

REPORT INFORMATION
  Report Type: 
  Country: None (occurrence: None)
  Receive Date: 20091125
  Receipt Date: 20091117
  Transmission Date: 20100525
  Serious: Yes (Other)
  Sender: FDA-Public Use
  Company Number: A0825037A

PATIENT
  Sex: Female

DRUGS (1)
  1. NABUMETONE [Suspect]
     Indication: DRUG USE FOR UNKNOWN INDICATION
     Route: 065

REACTIONS (2)
  - DRUG HYPERSENSITIVITY [None]
  - PULMONARY HYPERTENSION [None]
